FAERS Safety Report 23584929 (Version 3)
Quarter: 2024Q2

REPORT INFORMATION
  Report Type: Spontaneous
  Country: US (occurrence: US)
  Receive Date: 20240301
  Receipt Date: 20240604
  Transmission Date: 20240716
  Serious: Yes (Hospitalization, Other)
  Sender: FDA-Public Use
  Company Number: US-BRISTOL-MYERS SQUIBB COMPANY-2024-031615

PATIENT
  Age: 75 Year
  Sex: Female

DRUGS (1)
  1. ORENCIA [Suspect]
     Active Substance: ABATACEPT
     Indication: Product used for unknown indication
     Dosage: DOSE : INJECT 125 MG;     FREQ : ONCE EVERY 7 DAYS
     Route: 058

REACTIONS (4)
  - Fall [Unknown]
  - Joint injury [Unknown]
  - Cataract [Unknown]
  - Spinal fracture [Unknown]

NARRATIVE: CASE EVENT DATE: 20240201
